FAERS Safety Report 9691732 (Version 2)
Quarter: 2013Q4

REPORT INFORMATION
  Report Type: Spontaneous
  Country: US (occurrence: US)
  Receive Date: 20131115
  Receipt Date: 20131120
  Transmission Date: 20140711
  Serious: Yes (Other)
  Sender: FDA-Public Use
  Company Number: US-TEVA-444523USA

PATIENT
  Age: 35 Year
  Sex: Female
  Weight: 77.63 kg

DRUGS (3)
  1. PARAGARD 380A [Suspect]
     Indication: CONTRACEPTION
     Route: 015
     Dates: start: 20130904, end: 20131111
  2. PARAGARD 380A [Suspect]
     Route: 015
     Dates: start: 20131111
  3. TAMOXIFEN [Concomitant]
     Indication: BREAST CANCER

REACTIONS (2)
  - Device dislocation [Recovered/Resolved]
  - Device breakage [Recovered/Resolved]
